FAERS Safety Report 16022135 (Version 1)
Quarter: 2019Q1

REPORT INFORMATION
  Report Type: Spontaneous
  Country: AR (occurrence: AR)
  Receive Date: 20190301
  Receipt Date: 20190301
  Transmission Date: 20190418
  Serious: Yes (Death, Life-Threatening, Hospitalization, Other)
  Sender: FDA-Public Use
  Company Number: AR-ACCORD-109813

PATIENT
  Age: 15 Year
  Sex: Female

DRUGS (5)
  1. TACROLIMUS. [Suspect]
     Active Substance: TACROLIMUS
     Indication: IMMUNOSUPPRESSANT DRUG THERAPY
     Dates: start: 201205, end: 201301
  2. PREDNISONE/PREDNISONE ACETATE [Suspect]
     Active Substance: PREDNISONE ACETATE
     Indication: IMMUNOSUPPRESSANT DRUG THERAPY
     Dates: start: 201205, end: 201301
  3. METHYLPREDNISOLONE. [Suspect]
     Active Substance: METHYLPREDNISOLONE
     Indication: IMMUNOSUPPRESSANT DRUG THERAPY
     Dates: start: 201205, end: 201205
  4. MYCOPHENOLIC ACID. [Suspect]
     Active Substance: MYCOPHENOLIC ACID
     Indication: IMMUNOSUPPRESSANT DRUG THERAPY
     Dosage: 8 MG/KG/DOSE (2/D)
     Dates: start: 201205, end: 201301
  5. INSULIN [Concomitant]
     Active Substance: INSULIN NOS
     Indication: DIABETES MELLITUS

REACTIONS (4)
  - Respiratory distress [Not Recovered/Not Resolved]
  - Metastatic neoplasm [Fatal]
  - Kaposi^s sarcoma [Fatal]
  - Human herpesvirus 8 infection [Fatal]

NARRATIVE: CASE EVENT DATE: 201301
